FAERS Safety Report 7770730-2 (Version None)
Quarter: 2011Q3

REPORT INFORMATION
  Report Type: 
  Country: None (occurrence: None)
  Receive Date: 20110922
  Receipt Date: 20110307
  Transmission Date: 20111222
  Serious: No
  Sender: FDA-Public Use
  Company Number: US-ASTRAZENECA-2011SE13030

PATIENT
  Age: 86 Year
  Sex: Male

DRUGS (1)
  1. SEROQUEL [Suspect]
     Indication: AGITATION
     Route: 048
     Dates: start: 20110301

REACTIONS (4)
  - GAIT DISTURBANCE [None]
  - LETHARGY [None]
  - ASTHENIA [None]
  - OFF LABEL USE [None]
